FAERS Safety Report 8002744-1 (Version None)
Quarter: 2011Q4

REPORT INFORMATION
  Report Type: 
  Country: None (occurrence: None)
  Receive Date: 20111222
  Receipt Date: 20111217
  Transmission Date: 20120403
  Serious: Yes (Other)
  Sender: FDA-Public Use
  Company Number: US-US-EMD SERONO, INC.-7102548

PATIENT
  Sex: Female

DRUGS (5)
  1. REBIF [Suspect]
     Indication: MULTIPLE SCLEROSIS
     Route: 058
     Dates: start: 20100517
  2. HYDROCODONE BITARTRATE AND ACETAMINOPHEN [Concomitant]
     Dosage: 25/325
  3. LEVOTHYROXINE SODIUM [Concomitant]
  4. CELEXA [Concomitant]
  5. LORAZEPAM [Concomitant]

REACTIONS (4)
  - INJECTION SITE PRURITUS [None]
  - ANKLE FRACTURE [None]
  - FALL [None]
  - INJECTION SITE ERYTHEMA [None]
